FAERS Safety Report 25593719 (Version 1)
Quarter: 2025Q3

REPORT INFORMATION
  Report Type: Spontaneous
  Country: US (occurrence: US)
  Receive Date: 20250722
  Receipt Date: 20250722
  Transmission Date: 20251020
  Serious: Yes (Life-Threatening)
  Sender: MALLINCKRODT
  Company Number: US-MALLINCKRODT-MNK202504453

PATIENT
  Age: 77 Year
  Sex: Male

DRUGS (6)
  1. NITRIC OXIDE [Suspect]
     Active Substance: NITRIC OXIDE
     Indication: Hypoxia
     Route: 055
  2. HEPARIN [Concomitant]
     Active Substance: HEPARIN SODIUM
  3. VASOPRESSIN [Concomitant]
     Active Substance: VASOPRESSIN
     Indication: Hypotension
  4. LEVOPHED [Concomitant]
     Active Substance: NOREPINEPHRINE BITARTRATE
     Indication: Hypotension
  5. DOBUTAMINE [Concomitant]
     Active Substance: DOBUTAMINE HYDROCHLORIDE
  6. DIGOXIN [Concomitant]
     Active Substance: DIGOXIN

REACTIONS (6)
  - Ventricular tachycardia [Unknown]
  - Sepsis [Unknown]
  - Hypoxia [Unknown]
  - Condition aggravated [Unknown]
  - Product use in unapproved indication [Unknown]
  - Product use issue [Unknown]
